FAERS Safety Report 25398995 (Version 2)
Quarter: 2025Q3

REPORT INFORMATION
  Report Type: Spontaneous
  Country: US (occurrence: US)
  Receive Date: 20250605
  Receipt Date: 20250710
  Transmission Date: 20251020
  Serious: No
  Sender: ROCHE
  Company Number: US-ROCHE-10000298884

PATIENT
  Age: 34 Year
  Sex: Female

DRUGS (1)
  1. XOLAIR [Suspect]
     Active Substance: OMALIZUMAB
     Indication: Product used for unknown indication
     Dosage: 2 ML
     Route: 065
     Dates: start: 20250402

REACTIONS (1)
  - Immunoglobulins increased [Recovered/Resolved]

NARRATIVE: CASE EVENT DATE: 20250516
